FAERS Safety Report 25306883 (Version 4)
Quarter: 2025Q3

REPORT INFORMATION
  Report Type: Report from Study
  Country: US (occurrence: US)
  Receive Date: 20250513
  Receipt Date: 20250902
  Transmission Date: 20251020
  Serious: Yes (Hospitalization, Other)
  Sender: TAKEDA
  Company Number: US-TAKEDA-2024TUS051451

PATIENT
  Sex: Female

DRUGS (1)
  1. VEDOLIZUMAB [Suspect]
     Active Substance: VEDOLIZUMAB
     Indication: Colitis ulcerative

REACTIONS (12)
  - Fall [Unknown]
  - Colitis ulcerative [Unknown]
  - Syncope [Unknown]
  - Nervousness [Unknown]
  - Illness [Unknown]
  - Product dose omission issue [Unknown]
  - Poor venous access [Unknown]
  - Eye disorder [Unknown]
  - Arthritis [Unknown]
  - Bronchitis [Unknown]
  - Arthralgia [Unknown]
  - Nasopharyngitis [Unknown]
